FAERS Safety Report 9767636 (Version 1)
Quarter: 2013Q4

REPORT INFORMATION
  Report Type: Spontaneous
  Country: JP (occurrence: JP)
  Receive Date: 20131217
  Receipt Date: 20131217
  Transmission Date: 20140711
  Serious: Yes (Other)
  Sender: FDA-Public Use
  Company Number: PHHY2013JP144087

PATIENT
  Sex: 0

DRUGS (1)
  1. TACROLIMUS [Suspect]
     Indication: COLITIS ULCERATIVE
     Dosage: 0.5 MG/KG, BID

REACTIONS (6)
  - Post transplant distal limb syndrome [Recovering/Resolving]
  - Pain in extremity [Recovering/Resolving]
  - Bone marrow oedema [Unknown]
  - Gait disturbance [Recovering/Resolving]
  - Arthralgia [Recovering/Resolving]
  - Sensation of heaviness [Recovering/Resolving]
